FAERS Safety Report 4618938-9 (Version None)
Quarter: 2005Q2

REPORT INFORMATION
  Report Type: 
  Country: None (occurrence: None)
  Receive Date: 20050302
  Receipt Date: 20041008
  Transmission Date: 20051028
  Serious: Yes (Other)
  Sender: FDA-Public Use
  Company Number: 200420795BWH

PATIENT
  Sex: Female

DRUGS (1)
  1. TRASYLOL [Suspect]
     Dosage: 1 ML, ONCE, INTRAVENOUS
     Route: 042

REACTIONS (2)
  - CONVULSION [None]
  - HYPOXIA [None]
